FAERS Safety Report 18570862 (Version 1)
Quarter: 2020Q4

REPORT INFORMATION
  Report Type: Spontaneous
  Country: US (occurrence: US)
  Receive Date: 20201202
  Receipt Date: 20201202
  Transmission Date: 20210114
  Serious: No
  Sender: FDA-Public Use
  Company Number: US-ROCHE-2668134

PATIENT
  Sex: Female

DRUGS (8)
  1. OMEPRAZOLE;SODIUM BICARBONATE [Concomitant]
     Active Substance: OMEPRAZOLE\SODIUM BICARBONATE
  2. EVRYSDI [Suspect]
     Active Substance: RISDIPLAM
     Indication: PRODUCT USED FOR UNKNOWN INDICATION
     Dosage: TAKE 5 MG (6.6 ML) ONCE VIA G-TUBE DAILY AFTER MEA,
     Route: 065
  3. BUDESONIDE. [Concomitant]
     Active Substance: BUDESONIDE
  4. GENTAMICIN SULFATE. [Concomitant]
     Active Substance: GENTAMICIN SULFATE
  5. BALSALAZIDE DISODIUM. [Concomitant]
     Active Substance: BALSALAZIDE DISODIUM
  6. LEVALBUTEROL. [Concomitant]
     Active Substance: LEVALBUTEROL
  7. PULMOZYME [Concomitant]
     Active Substance: DORNASE ALFA
  8. POTASSIUM CITRATE. [Concomitant]
     Active Substance: POTASSIUM CITRATE

REACTIONS (2)
  - Accidental exposure to product [Unknown]
  - Paraesthesia [Unknown]
